FAERS Safety Report 5802889-8 (Version None)
Quarter: 2008Q2

REPORT INFORMATION
  Report Type: 
  Country: None (occurrence: None)
  Receive Date: 20080627
  Receipt Date: 20080124
  Transmission Date: 20081010
  Serious: Yes (Hospitalization)
  Sender: FDA-Public Use
  Company Number: 543383

PATIENT
  Age: 43 Year
  Sex: Female

DRUGS (3)
  1. INTERFERON ALFA [Suspect]
     Indication: CHRONIC MYELOID LEUKAEMIA
     Dosage: 8 MILLIONIU DAILY
  2. AMITRIPTLINE HYDROCHLORIDE TAB [Concomitant]
  3. LEVOTHYROXINE SODIUM [Concomitant]

REACTIONS (3)
  - BIPOLAR DISORDER [None]
  - DEPRESSION [None]
  - HYPOTHYROIDISM [None]
